FAERS Safety Report 7563203-3 (Version None)
Quarter: 2011Q2

REPORT INFORMATION
  Report Type: 
  Country: None (occurrence: None)
  Receive Date: 20110622
  Receipt Date: 20110617
  Transmission Date: 20111010
  Serious: Yes (Hospitalization)
  Sender: FDA-Public Use
  Company Number: FR-SANOFI-AVENTIS-2011SA038445

PATIENT
  Age: 55 Year
  Sex: Female

DRUGS (9)
  1. LASIX [Concomitant]
  2. PIPERACILLIN AND TAZOBACTAM [Concomitant]
  3. CIPROFLOXACIN [Concomitant]
  4. ESOMEPRAZOLE MAGNESIUM [Concomitant]
     Route: 048
  5. ATORVASTATIN CALCIUM [Concomitant]
     Route: 048
  6. SOLU-MEDROL [Concomitant]
  7. ASPIRIN [Suspect]
     Route: 048
  8. PLAVIX [Suspect]
     Route: 048
  9. PERINDOPRIL ERBUMINE [Concomitant]
     Route: 048

REACTIONS (4)
  - MELAENA [None]
  - RECTAL HAEMORRHAGE [None]
  - GASTROINTESTINAL HAEMORRHAGE [None]
  - ABDOMINAL PAIN [None]
